FAERS Safety Report 9682902 (Version 20)
Quarter: 2017Q2

REPORT INFORMATION
  Report Type: Spontaneous
  Country: US (occurrence: US)
  Receive Date: 20131112
  Receipt Date: 20170530
  Transmission Date: 20170830
  Serious: Yes (Disabling, Other)
  Sender: FDA-Public Use
  Company Number: US-ASTELLAS-2013US011612

PATIENT
  Sex: Female

DRUGS (12)
  1. ZOCOR [Concomitant]
     Active Substance: SIMVASTATIN
     Indication: PRODUCT USED FOR UNKNOWN INDICATION
     Route: 065
  2. NEXIUM [Concomitant]
     Active Substance: ESOMEPRAZOLE MAGNESIUM
     Indication: PRODUCT USED FOR UNKNOWN INDICATION
     Dosage: UNK, UNKNOWN FREQ.
     Route: 065
  3. FLONASE [Concomitant]
     Active Substance: FLUTICASONE PROPIONATE
     Indication: PRODUCT USED FOR UNKNOWN INDICATION
     Dosage: UNK, UNKNOWN FREQ.
     Route: 045
  4. TRAMADOL. [Concomitant]
     Active Substance: TRAMADOL
     Indication: PRODUCT USED FOR UNKNOWN INDICATION
     Dosage: UNK UNK, UNKNOWN FREQ.
     Route: 065
  5. TARCEVA [Suspect]
     Active Substance: ERLOTINIB HYDROCHLORIDE
     Indication: LUNG NEOPLASM MALIGNANT
     Route: 048
     Dates: start: 20130814
  6. VITAMIN D                          /00107901/ [Concomitant]
     Active Substance: ERGOCALCIFEROL
     Indication: PRODUCT USED FOR UNKNOWN INDICATION
     Dosage: UNK, UNKNOWN FREQ.
     Route: 065
  7. TARCEVA [Suspect]
     Active Substance: ERLOTINIB HYDROCHLORIDE
     Route: 048
     Dates: start: 20161026
  8. VITAMIN B12 [Concomitant]
     Active Substance: CYANOCOBALAMIN
     Indication: PRODUCT USED FOR UNKNOWN INDICATION
     Dosage: UNK UNK, UNKNOWN FREQ.
     Route: 065
  9. OXYCODONE [Concomitant]
     Active Substance: OXYCODONE
     Indication: PRODUCT USED FOR UNKNOWN INDICATION
     Dosage: UNK, UNKNOWN FREQ.
     Route: 065
  10. PAROXETINE. [Concomitant]
     Active Substance: PAROXETINE
     Indication: PRODUCT USED FOR UNKNOWN INDICATION
     Dosage: UNK UNK, UNKNOWN FREQ.
     Route: 065
  11. TARCEVA [Suspect]
     Active Substance: ERLOTINIB HYDROCHLORIDE
     Route: 048
  12. TARCEVA [Suspect]
     Active Substance: ERLOTINIB HYDROCHLORIDE
     Route: 048
     Dates: start: 20150430

REACTIONS (42)
  - Bone pain [Unknown]
  - Gait disturbance [Unknown]
  - Back pain [Unknown]
  - Neuropathy peripheral [Unknown]
  - Abdominal pain upper [Not Recovered/Not Resolved]
  - Peripheral coldness [Unknown]
  - Rash [Unknown]
  - Choking [Unknown]
  - Vertigo [Unknown]
  - Pain [Unknown]
  - Pruritus [Unknown]
  - Pulmonary haemorrhage [Unknown]
  - Pain of skin [Unknown]
  - Muscle disorder [Unknown]
  - Abdominal discomfort [Unknown]
  - Diarrhoea [Unknown]
  - Headache [Unknown]
  - Dyspnoea [Not Recovered/Not Resolved]
  - Visual impairment [Unknown]
  - Memory impairment [Unknown]
  - Skin exfoliation [Unknown]
  - Fatigue [Unknown]
  - Haematemesis [Unknown]
  - Muscular weakness [Unknown]
  - Asthenia [Unknown]
  - Burning sensation [Unknown]
  - Glucose tolerance impaired [Unknown]
  - Flatulence [Unknown]
  - Liver disorder [Unknown]
  - Dry skin [Unknown]
  - Nausea [Unknown]
  - Deafness [Unknown]
  - Weight increased [Unknown]
  - Heart rate increased [Unknown]
  - Gingival bleeding [Unknown]
  - Toothache [Unknown]
  - Dizziness [Unknown]
  - Swelling face [Unknown]
  - Myalgia [Unknown]
  - Cough [Unknown]
  - Vomiting [Unknown]
  - Malaise [Unknown]
